FAERS Safety Report 19322862 (Version 3)
Quarter: 2021Q2

REPORT INFORMATION
  Report Type: Spontaneous
  Country: US (occurrence: US)
  Receive Date: 20210528
  Receipt Date: 20210622
  Transmission Date: 20210717
  Serious: Yes (Other)
  Sender: FDA-Public Use
  Company Number: US-SA-2021SA175434

PATIENT
  Sex: Male

DRUGS (2)
  1. PLAVIX [Suspect]
     Active Substance: CLOPIDOGREL BISULFATE
     Dosage: UNK
     Dates: start: 2005
  2. APIXABAN [Concomitant]
     Active Substance: APIXABAN
     Dosage: UNK

REACTIONS (5)
  - Stent placement [Unknown]
  - Vitrectomy [Unknown]
  - Catheterisation cardiac [Unknown]
  - Cardiac disorder [Unknown]
  - Cardiac pacemaker insertion [Unknown]
